FAERS Safety Report 9948784 (Version 2)
Quarter: 2014Q2

REPORT INFORMATION
  Report Type: Spontaneous
  Country: US (occurrence: US)
  Receive Date: 20140304
  Receipt Date: 20140407
  Transmission Date: 20141212
  Serious: Yes (Hospitalization, Other)
  Sender: FDA-Public Use
  Company Number: US-BIOGENIDEC-2014BI018367

PATIENT
  Sex: Female
  Weight: 74 kg

DRUGS (20)
  1. AVONEX [Suspect]
     Indication: MULTIPLE SCLEROSIS
     Route: 030
  2. AVONEX [Suspect]
     Indication: MULTIPLE SCLEROSIS
     Route: 030
     Dates: start: 20020501, end: 20130603
  3. TECFIDERA [Concomitant]
     Indication: MULTIPLE SCLEROSIS
     Route: 048
     Dates: start: 201305
  4. TREXIMET [Concomitant]
     Indication: HEADACHE
     Route: 048
  5. ASPIRIN [Concomitant]
     Indication: PREMEDICATION
  6. XANAX [Concomitant]
     Indication: ANXIETY
  7. PREDNISONE [Concomitant]
     Route: 048
     Dates: start: 20130516, end: 20130815
  8. COPAXONE [Concomitant]
     Route: 058
     Dates: start: 20111025, end: 20130815
  9. SCOPOLAMINE [Concomitant]
     Route: 062
     Dates: start: 20130620, end: 20130926
  10. TEMAZEPAM [Concomitant]
     Indication: SLEEP DISORDER
     Route: 048
     Dates: start: 20130411, end: 20131010
  11. ALPRAZOLAM [Concomitant]
     Route: 048
     Dates: start: 20130516, end: 20130926
  12. LEVOTHYROXINE [Concomitant]
     Route: 048
  13. SEROQUEL [Concomitant]
     Route: 048
  14. BETASERON [Concomitant]
  15. TOPIRAMATE [Concomitant]
     Route: 048
  16. FLUCONAZOLE [Concomitant]
     Route: 048
  17. CYCLOBENZAPRINE [Concomitant]
     Route: 048
  18. TORADOL [Concomitant]
     Dates: start: 20110506
  19. TORADOL [Concomitant]
     Dates: start: 20120508
  20. KENALOG [Concomitant]

REACTIONS (5)
  - Malignant melanoma [Unknown]
  - Neck pain [Not Recovered/Not Resolved]
  - Adverse drug reaction [Unknown]
  - White blood cell count decreased [Unknown]
  - Headache [Recovered/Resolved]
